FAERS Safety Report 18695087 (Version 1)
Quarter: 2021Q1

REPORT INFORMATION
  Report Type: Spontaneous
  Country: US (occurrence: US)
  Receive Date: 20210102
  Receipt Date: 20210102
  Transmission Date: 20210419
  Serious: No
  Sender: FDA-Public Use
  Company Number: None

PATIENT
  Age: 68 Year
  Sex: Female
  Weight: 69.75 kg

DRUGS (2)
  1. ALL COLGATE TOOTHPASTE. [Suspect]
     Active Substance: SODIUM FLUORIDE OR STANNOUS FLUORIDE
  2. COLGATE TOTAL SF ADVANCED DEEP CLEAN [Suspect]
     Active Substance: STANNOUS FLUORIDE
     Indication: DENTAL CARE
     Dosage: ?          OTHER ROUTE:TOOTHBRUSH?

REACTIONS (1)
  - Gingival bleeding [None]

NARRATIVE: CASE EVENT DATE: 19700101
